FAERS Safety Report 24966086 (Version 1)
Quarter: 2025Q1

REPORT INFORMATION
  Report Type: Spontaneous
  Country: US (occurrence: None)
  Receive Date: 20250213
  Receipt Date: 20250213
  Transmission Date: 20250409
  Serious: Yes (Hospitalization)
  Sender: FDA-CTU
  Company Number: None

PATIENT
  Age: 66 Year
  Sex: Female
  Weight: 141.2 kg

DRUGS (3)
  1. TIRZEPATIDE [Suspect]
     Active Substance: TIRZEPATIDE
     Indication: Diabetes mellitus
     Route: 058
     Dates: start: 20250122, end: 20250206
  2. TIRZEPATIDE [Suspect]
     Active Substance: TIRZEPATIDE
     Indication: Obesity
  3. OZEMPIC [Concomitant]
     Active Substance: SEMAGLUTIDE
     Dates: start: 20240101, end: 20241218

REACTIONS (3)
  - Inappropriate schedule of product administration [None]
  - Cholelithiasis [None]
  - Product substitution issue [None]

NARRATIVE: CASE EVENT DATE: 20250206
